FAERS Safety Report 21594439 (Version 1)
Quarter: 2022Q4

REPORT INFORMATION
  Report Type: Spontaneous
  Country: US (occurrence: None)
  Receive Date: 20221115
  Receipt Date: 20221115
  Transmission Date: 20230113
  Serious: No
  Sender: FDA-Public Use
  Company Number: US-ROCHE-1999779

PATIENT
  Sex: Female

DRUGS (11)
  1. TAMIFLU [Suspect]
     Active Substance: OSELTAMIVIR PHOSPHATE
     Indication: Product used for unknown indication
     Route: 065
  2. ALBUTEROL SULFATE [Concomitant]
     Active Substance: ALBUTEROL SULFATE
     Dosage: 2.5 MG/ 3ML, SOLUTION FOR NEBULISATION
     Dates: start: 20160715
  3. BENICAR HCT [Concomitant]
     Active Substance: HYDROCHLOROTHIAZIDE\OLMESARTAN MEDOXOMIL
     Dates: start: 20160104
  4. CICLOPIROX [Concomitant]
     Active Substance: CICLOPIROX
     Dosage: FOR 2-4 WEEKS
     Route: 061
     Dates: start: 20170214
  5. CICLOPIROX [Concomitant]
     Active Substance: CICLOPIROX
     Dosage: WASH BODY ONCE A WEEK
     Route: 061
     Dates: start: 20170214
  6. DILTIAZEM [Concomitant]
     Active Substance: DILTIAZEM
     Route: 048
     Dates: start: 20170223
  7. FOLIC ACID [Concomitant]
     Active Substance: FOLIC ACID
     Route: 048
     Dates: start: 20160627
  8. IPRATROPIUM BROMIDE [Concomitant]
     Active Substance: IPRATROPIUM BROMIDE
     Dosage: NEBULIZER
     Dates: start: 20150421
  9. LEVOTHYROXINE [Concomitant]
     Active Substance: LEVOTHYROXINE
     Dates: start: 20161110
  10. SYMBICORT [Concomitant]
     Active Substance: BUDESONIDE\FORMOTEROL FUMARATE DIHYDRATE
     Dosage: 160 MCG-4.5 MCH/ACTUATION AEROSOL INHALER INHALE 2 PUFSS BY INHALATION ROUTE 2 TIMES EVERY DAY IN TH
     Dates: start: 20170222
  11. VENTOLIN HFA [Concomitant]
     Active Substance: ALBUTEROL SULFATE
     Dosage: 90 MCG.ACTUATION AEROSOL IHALER, INHALE 2 PUFFS , EVERY 4 TO 6 HOURS
     Route: 048
     Dates: start: 20160715

REACTIONS (1)
  - Drug hypersensitivity [Unknown]
